FAERS Safety Report 9102861 (Version 1)
Quarter: 2013Q1

REPORT INFORMATION
  Report Type: Spontaneous
  Country: US (occurrence: US)
  Receive Date: 20130219
  Receipt Date: 20130219
  Transmission Date: 20140127
  Serious: Yes (Other)
  Sender: FDA-Public Use
  Company Number: US-ASTRAZENECA-2013SE10314

PATIENT
  Sex: 0

DRUGS (3)
  1. BRILINTA [Suspect]
     Route: 048
  2. ASPIRIN [Suspect]
     Route: 065
  3. COUMADIN [Suspect]
     Route: 065

REACTIONS (1)
  - Gastrointestinal haemorrhage [Unknown]
